FAERS Safety Report 6086090-1 (Version None)
Quarter: 2009Q1

REPORT INFORMATION
  Report Type: 
  Country: None (occurrence: None)
  Receive Date: 20090217
  Receipt Date: 20090217
  Transmission Date: 20090719
  Serious: Yes (Other)
  Sender: FDA-Public Use
  Company Number: None

PATIENT
  Age: 75 Year
  Sex: Male
  Weight: 88.905 kg

DRUGS (1)
  1. OMNISCAN [Suspect]

REACTIONS (12)
  - ARTHRALGIA [None]
  - EYE DISCHARGE [None]
  - FATIGUE [None]
  - FEELING ABNORMAL [None]
  - JOINT STIFFNESS [None]
  - LISTLESS [None]
  - MUSCULOSKELETAL CHEST PAIN [None]
  - MYALGIA [None]
  - PEAU D'ORANGE [None]
  - PHOTOPHOBIA [None]
  - RASH MACULAR [None]
  - RASH PRURITIC [None]
